FAERS Safety Report 16200983 (Version 1)
Quarter: 2019Q2

REPORT INFORMATION
  Report Type: Spontaneous
  Country: US (occurrence: US)
  Receive Date: 20190416
  Receipt Date: 20190416
  Transmission Date: 20190711
  Serious: No
  Sender: FDA-Public Use
  Company Number: US-BION-007478

PATIENT
  Age: 19 Year
  Sex: Female

DRUGS (2)
  1. CLOZAPINE. [Concomitant]
     Active Substance: CLOZAPINE
  2. ALEVE [Suspect]
     Active Substance: NAPROXEN SODIUM
     Indication: HERNIA PAIN
     Dosage: 4 TO 6 A DAY ABOUT 2 MONTHS
     Route: 048

REACTIONS (3)
  - Incorrect product administration duration [Not Recovered/Not Resolved]
  - Incorrect dose administered [Not Recovered/Not Resolved]
  - Product use in unapproved indication [Not Recovered/Not Resolved]
